FAERS Safety Report 7556231-5 (Version None)
Quarter: 2011Q2

REPORT INFORMATION
  Report Type: 
  Country: None (occurrence: None)
  Receive Date: 20110615
  Receipt Date: 20110615
  Transmission Date: 20111010
  Serious: Yes (Other)
  Sender: FDA-Public Use
  Company Number: None

PATIENT
  Age: 55 Year
  Sex: Male
  Weight: 140.6151 kg

DRUGS (2)
  1. SIMVASTATIN [Suspect]
     Indication: BLOOD CHOLESTEROL
     Dosage: 80 MG 1X DAILY PO
     Route: 048
     Dates: start: 20050101
  2. SIMVASTATIN [Suspect]
     Indication: BLOOD CHOLESTEROL
     Dosage: 40 MG 1X DAILY PO
     Route: 048
     Dates: start: 20080101

REACTIONS (3)
  - MUSCULAR WEAKNESS [None]
  - MUSCLE ENZYME INCREASED [None]
  - PAIN IN EXTREMITY [None]
